FAERS Safety Report 12375613 (Version 2)
Quarter: 2016Q2

REPORT INFORMATION
  Report Type: Spontaneous
  Country: FR (occurrence: FR)
  Receive Date: 20160517
  Receipt Date: 20160527
  Transmission Date: 20160815
  Serious: Yes (Other)
  Sender: FDA-Public Use
  Company Number: FR-SA-2016SA091869

PATIENT
  Age: 32 Year
  Sex: Female

DRUGS (1)
  1. LEMTRADA [Suspect]
     Active Substance: ALEMTUZUMAB
     Indication: RELAPSING-REMITTING MULTIPLE SCLEROSIS
     Route: 041
     Dates: start: 20160118, end: 20160122

REACTIONS (8)
  - Abdominal pain upper [Unknown]
  - Lymphopenia [Unknown]
  - Erythema [Unknown]
  - Pain in extremity [Unknown]
  - Headache [Unknown]
  - Leukocyturia [Unknown]
  - Staphylococcal infection [Unknown]
  - Rash [Recovered/Resolved]

NARRATIVE: CASE EVENT DATE: 201603
